FAERS Safety Report 15897477 (Version 3)
Quarter: 2019Q4

REPORT INFORMATION
  Report Type: Spontaneous
  Country: US (occurrence: US)
  Receive Date: 20190131
  Receipt Date: 20191008
  Transmission Date: 20200122
  Serious: No
  Sender: FDA-Public Use
  Company Number: US-ASTRAZENECA-2019SE13791

PATIENT
  Age: 23024 Day
  Sex: Male
  Weight: 86.2 kg

DRUGS (16)
  1. OMEPRAZOLE. [Suspect]
     Active Substance: OMEPRAZOLE
     Indication: GASTROOESOPHAGEAL REFLUX DISEASE
     Route: 048
  2. DIVALPROEX [Concomitant]
     Active Substance: DIVALPROEX SODIUM
     Indication: MIGRAINE
     Dosage: DELAYED RELEASE 125 MG. IN AM AND 250 MG. AT NIGHT
     Route: 048
  3. OMEPRAZOLE. [Suspect]
     Active Substance: OMEPRAZOLE
     Indication: HIATUS HERNIA
     Route: 048
  4. LOSARTAN. [Concomitant]
     Active Substance: LOSARTAN
     Indication: NEPHROPROTECTIVE THERAPY
     Route: 048
  5. ZOLPIDEM [Concomitant]
     Active Substance: ZOLPIDEM TARTRATE
     Indication: INSOMNIA
     Dosage: 12.5 MG. ONCE A DAY BY MOUTH
  6. LOSARTAN. [Concomitant]
     Active Substance: LOSARTAN
     Indication: HYPERTENSION
     Route: 048
  7. MIRTAZAPINE. [Concomitant]
     Active Substance: MIRTAZAPINE
     Indication: INSOMNIA
     Dosage: 45 MG, BEFORE BED SINCE APPROXIMATELY 7 OR 8 YEARS AGO
  8. ROSUVASTATIN. [Concomitant]
     Active Substance: ROSUVASTATIN
     Indication: BLOOD CHOLESTEROL ABNORMAL
     Route: 048
  9. TRAZODONE [Concomitant]
     Active Substance: TRAZODONE HYDROCHLORIDE
     Indication: BIPOLAR DISORDER
     Dosage: 100 MG. AT NIGHT BY MOUTH SINCE APPROXIMATELY 7 OR 8 YEARS AGO
  10. TRAZODONE [Concomitant]
     Active Substance: TRAZODONE HYDROCHLORIDE
     Indication: DEPRESSION
     Dosage: 100 MG. AT NIGHT BY MOUTH SINCE APPROXIMATELY 7 OR 8 YEARS AGO
  11. BYDUREON BCISE [Suspect]
     Active Substance: EXENATIDE
     Indication: TYPE 2 DIABETES MELLITUS
     Route: 058
     Dates: start: 20181202
  12. GABAPENTIN. [Concomitant]
     Active Substance: GABAPENTIN
     Indication: BIPOLAR DISORDER
     Dosage: 1600 MG. AT NIGHT BY MOUTH SINCE APPROXIMATELY 7 OR 8 YEARS AGO
  13. MIRTAZAPINE. [Concomitant]
     Active Substance: MIRTAZAPINE
     Indication: DEPRESSION
     Dosage: 45 MG, BEFORE BED SINCE APPROXIMATELY 7 OR 8 YEARS AGO
  14. LAMOTRIGINE. [Concomitant]
     Active Substance: LAMOTRIGINE
     Indication: BIPOLAR DISORDER
     Dosage: 150 MG, AT NIGHT BY MOUTH SINCE APPROXIMATELY 7 OR 8 YEARS AGO
  15. TRAZODONE [Concomitant]
     Active Substance: TRAZODONE HYDROCHLORIDE
     Indication: INSOMNIA
     Dosage: 100 MG. AT NIGHT BY MOUTH SINCE APPROXIMATELY 7 OR 8 YEARS AGO
  16. METFORMIN [Concomitant]
     Active Substance: METFORMIN HYDROCHLORIDE
     Indication: DIABETES MELLITUS
     Route: 048

REACTIONS (9)
  - Diabetes mellitus [Unknown]
  - Migraine [Unknown]
  - Weight decreased [Not Recovered/Not Resolved]
  - Device leakage [Unknown]
  - Injection site nodule [Unknown]
  - Injection site haemorrhage [Unknown]
  - Incorrect dose administered by device [Not Recovered/Not Resolved]
  - Blood glucose increased [Not Recovered/Not Resolved]
  - Device malfunction [Unknown]

NARRATIVE: CASE EVENT DATE: 20181202
